FAERS Safety Report 22375569 (Version 1)
Quarter: 2023Q2

REPORT INFORMATION
  Report Type: Spontaneous
  Country: US (occurrence: US)
  Receive Date: 20230527
  Receipt Date: 20230527
  Transmission Date: 20230722
  Serious: No
  Sender: FDA-Public Use
  Company Number: US-PERRIGO-22US012214

PATIENT
  Sex: Female
  Weight: 53.515 kg

DRUGS (2)
  1. MINOXIDIL [Suspect]
     Active Substance: MINOXIDIL
     Indication: Alopecia
     Dosage: 5 ML, BID
     Route: 061
     Dates: start: 2009
  2. PREDNISONE [Concomitant]
     Active Substance: PREDNISONE
     Dosage: UNK, PRN
     Route: 065
     Dates: start: 2005

REACTIONS (4)
  - Hair colour changes [Not Recovered/Not Resolved]
  - Inappropriate schedule of product administration [Unknown]
  - Off label use [Unknown]
  - Wrong technique in product usage process [Unknown]

NARRATIVE: CASE EVENT DATE: 20090101
